FAERS Safety Report 25164037 (Version 1)
Quarter: 2025Q2

REPORT INFORMATION
  Report Type: Spontaneous
  Country: US (occurrence: US)
  Receive Date: 20250405
  Receipt Date: 20250405
  Transmission Date: 20250717
  Serious: Yes (Other)
  Sender: AUROBINDO
  Company Number: US-AUROBINDO-AUR-APL-2022-011512

PATIENT
  Age: 57 Year
  Sex: Female

DRUGS (2)
  1. NIACIN [Suspect]
     Active Substance: NIACIN
     Indication: Product used for unknown indication
     Route: 048
  2. PECTIN [Suspect]
     Active Substance: PECTIN
     Indication: Product used for unknown indication
     Route: 065

REACTIONS (2)
  - Anaphylactic reaction [Unknown]
  - Anaphylactoid reaction [Unknown]
